FAERS Safety Report 11201333 (Version 1)
Quarter: 2015Q2

REPORT INFORMATION
  Report Type: Spontaneous
  Country: None (occurrence: None)
  Receive Date: 20150617
  Receipt Date: 20150617
  Transmission Date: 20150821
  Serious: Yes (Hospitalization)
  Sender: FDA-Public Use
  Company Number: None

PATIENT
  Age: 57 Year
  Sex: Male
  Weight: 86 kg

DRUGS (13)
  1. CAFFEINE TAB [Concomitant]
  2. VIAGRA [Concomitant]
     Active Substance: SILDENAFIL CITRATE
  3. LIPITOR [Concomitant]
     Active Substance: ATORVASTATIN CALCIUM
  4. LOSARTAN [Concomitant]
     Active Substance: LOSARTAN
  5. MORPHINE SULFATE ER [Concomitant]
     Active Substance: MORPHINE SULFATE
  6. ASPIRIN. [Concomitant]
     Active Substance: ASPIRIN
  7. NITROSTAT [Concomitant]
     Active Substance: NITROGLYCERIN
  8. LASIX [Concomitant]
     Active Substance: FUROSEMIDE
  9. TRAZODONE [Concomitant]
     Active Substance: TRAZODONE HYDROCHLORIDE
  10. FAMOTIDINE. [Concomitant]
     Active Substance: FAMOTIDINE
  11. METOPROLOL SUCCINATE. [Concomitant]
     Active Substance: METOPROLOL SUCCINATE
  12. PERCOCET [Concomitant]
     Active Substance: ACETAMINOPHEN\OXYCODONE HYDROCHLORIDE
  13. CONTRAVE [Suspect]
     Active Substance: BUPROPION HYDROCHLORIDE\NALTREXONE HYDROCHLORIDE
     Indication: WEIGHT DECREASED
     Dosage: 1 DOSE?TITRATION SCHEDULE
     Route: 048

REACTIONS (2)
  - Drug interaction [None]
  - Drug withdrawal syndrome [None]

NARRATIVE: CASE EVENT DATE: 20150615
